FAERS Safety Report 10081755 (Version 1)
Quarter: 2014Q2

REPORT INFORMATION
  Report Type: Spontaneous
  Country: FR (occurrence: None)
  Receive Date: 20140414
  Receipt Date: 20140414
  Transmission Date: 20141212
  Serious: Yes (Other)
  Sender: FDA-Public Use
  Company Number: FR-ALKEM-000553

PATIENT
  Sex: Male

DRUGS (2)
  1. MYCOPHENOLATE MOFETIL (MYCOPHENOLATE MOFETIL) [Suspect]
     Indication: TRANSPLANT
  2. PREDNISOLONE (PREDNISOLONE) [Suspect]
     Route: 064

REACTIONS (5)
  - Osteoporosis [None]
  - Inulin renal clearance decreased [None]
  - Arterial thrombosis [None]
  - Osteitis [None]
  - Arm amputation [None]
